FAERS Safety Report 4796242-6 (Version None)
Quarter: 2005Q4

REPORT INFORMATION
  Report Type: 
  Country: None (occurrence: None)
  Receive Date: 20051006
  Receipt Date: 20051006
  Transmission Date: 20060501
  Serious: Yes (Hospitalization)
  Sender: FDA-Public Use
  Company Number: None

PATIENT
  Age: 58 Year
  Sex: Male

DRUGS (1)
  1. FUROSEMIDE [Suspect]
     Dosage: 60MG BID PO
     Route: 048

REACTIONS (1)
  - HYPOTHERMIA [None]
